FAERS Safety Report 5277577-X (Version None)
Quarter: 2007Q1

REPORT INFORMATION
  Report Type: 
  Country: None (occurrence: None)
  Receive Date: 20070327
  Receipt Date: 20070322
  Transmission Date: 20070707
  Serious: Yes (Other)
  Sender: FDA-Public Use
  Company Number: MX-SHR-MX-2007-010078

PATIENT
  Age: 30 Year
  Sex: Female

DRUGS (1)
  1. YASMIN [Suspect]
     Indication: ORAL CONTRACEPTION
     Dosage: 1 TAB(S), UNK
     Route: 048

REACTIONS (2)
  - ABORTION INCOMPLETE [None]
  - PREGNANCY ON ORAL CONTRACEPTIVE [None]
